FAERS Safety Report 10542301 (Version 1)
Quarter: 2014Q4

REPORT INFORMATION
  Report Type: Spontaneous
  Country: US (occurrence: None)
  Receive Date: 20141010
  Receipt Date: 20141010
  Transmission Date: 20150529
  Serious: Yes (Hospitalization)
  Sender: FDA-Public Use
  Company Number: 163-POMAL-14053148

PATIENT
  Age: 76 Year
  Sex: Female

DRUGS (14)
  1. AMOX TR-POTASSIUM ( CLAVULIN) [Concomitant]
  2. AMLODIPINE BESYLATE ( AMLODIPINE BESILATE) [Concomitant]
  3. OXYCODONE [Concomitant]
     Active Substance: OXYCODONE
  4. PANTOPRAZOLE [Concomitant]
     Active Substance: PANTOPRAZOLE SODIUM
  5. ACYCLOVIR. [Concomitant]
     Active Substance: ACYCLOVIR
  6. BUDESONIDE. [Concomitant]
     Active Substance: BUDESONIDE
  7. POMALYST [Suspect]
     Active Substance: POMALIDOMIDE
     Indication: PLASMA CELL MYELOMA
     Dosage: 4 MG, 21 IN 21 D, PO
     Route: 048
     Dates: start: 20140213
  8. WARFARIN [Concomitant]
     Active Substance: WARFARIN
  9. DEXAMETHASONE. [Concomitant]
     Active Substance: DEXAMETHASONE
  10. MIRALAX ( MACROGOL) [Concomitant]
  11. VITAMIN D2 ( ERGOCALCIFEROL) [Concomitant]
  12. TOLTERODINE TARTRATE ( TOLTERODINE L- TARTRATE) [Concomitant]
  13. PROCHLORPERAZINE. [Concomitant]
     Active Substance: PROCHLORPERAZINE
  14. NITROFURANTOIN. [Concomitant]
     Active Substance: NITROFURANTOIN

REACTIONS (3)
  - Clostridium difficile infection [None]
  - Urinary tract infection [None]
  - Constipation [None]

NARRATIVE: CASE EVENT DATE: 201405
